FAERS Safety Report 8598010-6 (Version None)
Quarter: 2012Q3

REPORT INFORMATION
  Report Type: 
  Country: None (occurrence: None)
  Receive Date: 20120816
  Receipt Date: 20120814
  Transmission Date: 20120928
  Serious: Yes (Hospitalization)
  Sender: FDA-Public Use
  Company Number: BR-BRISTOL-MYERS SQUIBB COMPANY-16857138

PATIENT
  Age: 53 Year
  Sex: Female

DRUGS (1)
  1. IPILIMUMAB [Suspect]
     Indication: MALIGNANT MELANOMA
     Dosage: INTER ON 02JUL12,RESTARTED ON 23JUL12,INTER ON 23JUL12.
     Route: 042
     Dates: start: 20120702

REACTIONS (2)
  - DIARRHOEA [None]
  - VOMITING [None]
